FAERS Safety Report 5015940-2 (Version None)
Quarter: 2006Q2

REPORT INFORMATION
  Report Type: 
  Country: None (occurrence: None)
  Receive Date: 20060531
  Receipt Date: 20060531
  Transmission Date: 20061013
  Serious: No
  Sender: FDA-Public Use
  Company Number: None

PATIENT
  Age: 53 Year
  Sex: Male
  Weight: 113.3993 kg

DRUGS (1)
  1. VISIPAQUE [Suspect]
     Dosage: 74 CC

REACTIONS (3)
  - POST PROCEDURAL COMPLICATION [None]
  - PRURITUS [None]
  - RASH MACULO-PAPULAR [None]
